FAERS Safety Report 17443837 (Version 1)
Quarter: 2020Q1

REPORT INFORMATION
  Report Type: Spontaneous
  Country: US (occurrence: US)
  Receive Date: 20200220
  Receipt Date: 20200220
  Transmission Date: 20200409
  Serious: No
  Sender: FDA-Public Use
  Company Number: None

PATIENT

DRUGS (1)
  1. ENOXAPARIN INJ 150MG/ML [Suspect]
     Active Substance: ENOXAPARIN SODIUM
     Indication: BLOOD DISORDER
     Route: 058
     Dates: start: 201908

REACTIONS (1)
  - No adverse event [None]

NARRATIVE: CASE EVENT DATE: 20200220
